FAERS Safety Report 18136626 (Version 5)
Quarter: 2020Q3

REPORT INFORMATION
  Report Type: Report from Study
  Country: US (occurrence: US)
  Receive Date: 20200811
  Receipt Date: 20200910
  Transmission Date: 20201103
  Serious: No
  Sender: FDA-Public Use
  Company Number: NVSC2020US217772

PATIENT
  Age: 65 Year
  Sex: Female

DRUGS (1)
  1. ENTRESTO [Suspect]
     Active Substance: SACUBITRIL\VALSARTAN
     Indication: PRODUCT USED FOR UNKNOWN INDICATION
     Dosage: 1 DF, BID
     Route: 048
     Dates: start: 202007

REACTIONS (13)
  - Hypertension [Recovering/Resolving]
  - Headache [Unknown]
  - Dyspnoea [Recovering/Resolving]
  - Blood glucose decreased [Unknown]
  - Malaise [Unknown]
  - Vomiting [Recovering/Resolving]
  - Vertigo [Recovering/Resolving]
  - Cough [Unknown]
  - Morning sickness [Unknown]
  - Blood sodium decreased [Unknown]
  - Dizziness [Recovering/Resolving]
  - Fatigue [Unknown]
  - Drug hypersensitivity [Unknown]

NARRATIVE: CASE EVENT DATE: 202007
